FAERS Safety Report 10025646 (Version 2)
Quarter: 2014Q1

REPORT INFORMATION
  Report Type: Spontaneous
  Country: US (occurrence: US)
  Receive Date: 20140320
  Receipt Date: 20140320
  Transmission Date: 20141002
  Serious: Yes (Hospitalization)
  Sender: FDA-Public Use
  Company Number: US-UCBSA-110567

PATIENT
  Age: 18 Year
  Sex: Female

DRUGS (4)
  1. CIMZIA [Suspect]
     Indication: CROHN^S DISEASE
     Dates: start: 20131101, end: 201401
  2. CIMZIA [Suspect]
     Indication: CROHN^S DISEASE
  3. OMEPRAZOLE [Concomitant]
     Indication: GASTROOESOPHAGEAL REFLUX DISEASE
  4. LAMOTIL [Concomitant]
     Indication: FAECAL INCONTINENCE

REACTIONS (3)
  - Crohn^s disease [Unknown]
  - Migraine [Recovered/Resolved]
  - Drug ineffective [Recovered/Resolved]
